FAERS Safety Report 24558773 (Version 3)
Quarter: 2024Q4

REPORT INFORMATION
  Report Type: Spontaneous
  Country: SG (occurrence: SG)
  Receive Date: 20241029
  Receipt Date: 20241226
  Transmission Date: 20250115
  Serious: Yes (Hospitalization)
  Sender: SANDOZ
  Company Number: SG-002147023-NVSC2024SG082027

PATIENT
  Age: 38 Year
  Sex: Female
  Weight: 106.5 kg

DRUGS (53)
  1. CYCLOPHOSPHAMIDE [Suspect]
     Active Substance: CYCLOPHOSPHAMIDE
     Indication: Follicular lymphoma
     Dosage: 250 MG/M2
     Route: 042
     Dates: start: 20240301
  2. FLUDARABINE [Suspect]
     Active Substance: FLUDARABINE PHOSPHATE
     Dosage: 25 MG/M2
     Route: 040
     Dates: start: 20240301
  3. FLUDARABINE [Suspect]
     Active Substance: FLUDARABINE PHOSPHATE
     Indication: Follicular lymphoma
     Dosage: 25 MG/M2
     Route: 042
     Dates: start: 20240301
  4. ACYCLOVIR [Concomitant]
     Active Substance: ACYCLOVIR
     Indication: Antiviral prophylaxis
     Dosage: UNK
     Route: 065
     Dates: start: 20240229
  5. BETAMETHASONE [Concomitant]
     Active Substance: BETAMETHASONE
     Indication: Dermatitis contact
     Dosage: UNK
     Route: 065
     Dates: start: 20240701, end: 20240708
  6. Boost isocal [Concomitant]
     Indication: Prophylaxis
     Dosage: UNK
     Route: 065
     Dates: start: 20240323, end: 20240518
  7. CHLORPHENIRAMINE MALEATE [Concomitant]
     Active Substance: CHLORPHENIRAMINE MALEATE
     Indication: Prophylaxis
     Dosage: UNK
     Route: 065
     Dates: start: 20240422, end: 20240429
  8. CHLORPHENIRAMINE MALEATE [Concomitant]
     Active Substance: CHLORPHENIRAMINE MALEATE
     Indication: Prophylaxis
     Dosage: UNK
     Route: 065
     Dates: start: 20240607, end: 20240621
  9. CHLORPHENIRAMINE MALEATE [Concomitant]
     Active Substance: CHLORPHENIRAMINE MALEATE
     Indication: Upper respiratory tract infection
     Dosage: UNK
     Route: 065
     Dates: start: 20240403, end: 20240416
  10. CHLORPHENIRAMINE MALEATE [Concomitant]
     Active Substance: CHLORPHENIRAMINE MALEATE
     Dosage: UNK
     Route: 065
     Dates: start: 20240701, end: 20240708
  11. AMOXICILLIN\CLAVULANATE POTASSIUM [Concomitant]
     Active Substance: AMOXICILLIN\CLAVULANATE POTASSIUM
     Indication: Infection prophylaxis
     Dosage: UNK
     Route: 065
     Dates: start: 20240703, end: 20240704
  12. AMOXICILLIN\CLAVULANATE POTASSIUM [Concomitant]
     Active Substance: AMOXICILLIN\CLAVULANATE POTASSIUM
     Indication: Pyrexia
     Dosage: UNK
     Route: 065
     Dates: start: 20240705, end: 20240710
  13. AMOXICILLIN\CLAVULANATE POTASSIUM [Concomitant]
     Active Substance: AMOXICILLIN\CLAVULANATE POTASSIUM
     Indication: Upper respiratory tract infection
     Dosage: AMOXICILLIN 500MG, CLAVULANIC ACID 125MG
     Route: 065
     Dates: start: 20240403, end: 20240410
  14. COTRIMOXAZOLE [Concomitant]
     Active Substance: SULFAMETHOXAZOLE\TRIMETHOPRIM
     Indication: Infection prophylaxis
     Dosage: TRIMETHOPRIM 80MG, SULFAMETHOXAZOLE
     Route: 065
     Dates: start: 20240301, end: 20240708
  15. COTRIMOXAZOLE [Concomitant]
     Active Substance: SULFAMETHOXAZOLE\TRIMETHOPRIM
     Indication: Pyrexia
     Dosage: TRIMETHOPRIM 80MG, SULFAMETHOXAZOLE
     Route: 065
     Dates: start: 20240709, end: 20240715
  16. DEXTROSE [Concomitant]
     Active Substance: DEXTROSE MONOHYDRATE
     Indication: Diabetes mellitus
     Dosage: 15 G POWDER IN 50ML OF WATER
     Route: 065
     Dates: start: 20240421, end: 20240421
  17. Diben [Concomitant]
     Indication: Prophylaxis
     Dosage: UNK
     Route: 065
     Dates: start: 20240322, end: 20240517
  18. BENZYDAMINE [Concomitant]
     Active Substance: BENZYDAMINE
     Indication: Pain prophylaxis
     Dosage: UNK
     Route: 065
     Dates: start: 20240422, end: 20240429
  19. BENZYDAMINE [Concomitant]
     Active Substance: BENZYDAMINE
     Indication: Upper respiratory tract infection
     Dosage: UNK
     Route: 065
     Dates: start: 20240403, end: 20240416
  20. EMPAGLIFLOZIN [Concomitant]
     Active Substance: EMPAGLIFLOZIN
     Indication: Diabetes mellitus
     Dosage: UNK
     Route: 065
     Dates: start: 20240201, end: 20240422
  21. EMPAGLIFLOZIN [Concomitant]
     Active Substance: EMPAGLIFLOZIN
     Dosage: UNK
     Route: 065
     Dates: start: 20240523, end: 20240715
  22. FEXOFENADINE HYDROCHLORIDE [Concomitant]
     Active Substance: FEXOFENADINE HYDROCHLORIDE
     Indication: Prophylaxis
     Dosage: UNK
     Route: 065
     Dates: start: 20240701, end: 20240708
  23. GLUCERNA [Concomitant]
     Active Substance: AMINO ACIDS\DEXTROSE\ELECTROLYTES NOS\SOYBEAN OIL\VITAMINS
     Indication: Prophylaxis
     Dosage: UNK
     Route: 065
     Dates: start: 20240422, end: 20240429
  24. GLUCERNA [Concomitant]
     Active Substance: AMINO ACIDS\DEXTROSE\ELECTROLYTES NOS\SOYBEAN OIL\VITAMINS
     Indication: Nutritional supplementation
     Dosage: LIQUID
     Route: 065
     Dates: start: 20240418, end: 20240421
  25. HEPARIN SODIUM [Concomitant]
     Active Substance: HEPARIN SODIUM
     Indication: Catheter management
     Dosage: UNK
     Route: 065
     Dates: start: 20240422, end: 20240422
  26. IRON [Concomitant]
     Active Substance: IRON
     Indication: Mineral supplementation
     Dosage: UNK
     Route: 065
     Dates: start: 20240418
  27. LACTULOSE [Concomitant]
     Active Substance: LACTULOSE
     Indication: Constipation prophylaxis
     Dosage: UNK
     Route: 065
     Dates: start: 20231005, end: 20240601
  28. MAGNESIUM [Concomitant]
     Active Substance: MAGNESIUM
     Indication: Hypomagnesaemia
     Dosage: UNK
     Route: 065
     Dates: start: 20240507, end: 20240521
  29. METFORMIN [Concomitant]
     Active Substance: METFORMIN HYDROCHLORIDE
     Indication: Diabetes mellitus
     Dosage: UNK
     Route: 065
     Dates: start: 20230608
  30. FILGRASTIM [Concomitant]
     Active Substance: FILGRASTIM
     Indication: Neutrophil count decreased
     Dosage: 300MCG/0.5ML, PREFILLED SYRINGE
     Route: 065
     Dates: start: 20240418, end: 20240418
  31. INSULIN ASPART [Concomitant]
     Active Substance: INSULIN ASPART
     Indication: Diabetes mellitus
     Dosage: FLEXPEN
     Route: 065
     Dates: start: 20240201, end: 20240522
  32. INSULIN ASPART [Concomitant]
     Active Substance: INSULIN ASPART
     Dosage: FLEXPEN
     Route: 065
     Dates: start: 20240523, end: 20240718
  33. OMEPRAZOLE [Concomitant]
     Active Substance: OMEPRAZOLE
     Indication: Gastrointestinal disorder prophylaxis
     Dosage: UNK
     Route: 065
     Dates: start: 20240323, end: 20240816
  34. OralSeven [Concomitant]
     Indication: Prophylaxis
     Dosage: MOISTURISING MOUTHWASH
     Route: 065
     Dates: start: 20240301, end: 20240517
  35. ACETAMINOPHEN [Concomitant]
     Active Substance: ACETAMINOPHEN
     Indication: Pain
     Dosage: UNK
     Route: 065
     Dates: start: 20240703, end: 20240703
  36. ACETAMINOPHEN [Concomitant]
     Active Substance: ACETAMINOPHEN
     Indication: Prophylaxis
     Dosage: UNK
     Route: 065
     Dates: start: 20240306, end: 20240601
  37. ACETAMINOPHEN [Concomitant]
     Active Substance: ACETAMINOPHEN
     Indication: Pyrexia
  38. POTASSIUM CHLORIDE [Concomitant]
     Active Substance: POTASSIUM CHLORIDE
     Indication: Hypokalaemia
     Dosage: (PREMIXED IN WFI) 10MMOL/100ML
     Route: 065
     Dates: start: 20240417, end: 20240417
  39. POTASSIUM CHLORIDE [Concomitant]
     Active Substance: POTASSIUM CHLORIDE
     Dosage: 10MMOL/100ML INFUSION
     Route: 065
     Dates: start: 20240507, end: 20240507
  40. POTASSIUM CHLORIDE [Concomitant]
     Active Substance: POTASSIUM CHLORIDE
     Dosage: 500MG/5ML MIXTURE
     Route: 065
     Dates: start: 20240716, end: 20240716
  41. POTASSIUM CHLORIDE [Concomitant]
     Active Substance: POTASSIUM CHLORIDE
     Dosage: 600MG SR TABLET
     Route: 065
     Dates: start: 20240507, end: 20240509
  42. POTASSIUM CHLORIDE [Concomitant]
     Active Substance: POTASSIUM CHLORIDE
     Dosage: 600MG SR TABLET
     Route: 065
     Dates: start: 20240510, end: 20240521
  43. POTASSIUM CHLORIDE [Concomitant]
     Active Substance: POTASSIUM CHLORIDE
     Dosage: SR TABLET
     Route: 065
     Dates: start: 20240417, end: 20240417
  44. POTASSIUM CHLORIDE [Concomitant]
     Active Substance: POTASSIUM CHLORIDE
     Dosage: SR TABLET
     Route: 065
     Dates: start: 20240716, end: 20240717
  45. POTASSIUM CHLORIDE [Concomitant]
     Active Substance: POTASSIUM CHLORIDE
     Dosage: UNK
     Route: 065
     Dates: start: 20240703, end: 20240705
  46. CODEINE PHOSPHATE\PROMETHAZINE HYDROCHLORIDE [Concomitant]
     Active Substance: CODEINE PHOSPHATE\PROMETHAZINE HYDROCHLORIDE
     Indication: Prophylaxis
     Dosage: PROMETHAZINE HCL 3.6MG/5ML, CODEINE PHOSPHATE9MG/5ML
     Route: 065
     Dates: start: 20240422, end: 20240506
  47. CODEINE PHOSPHATE\PROMETHAZINE HYDROCHLORIDE [Concomitant]
     Active Substance: CODEINE PHOSPHATE\PROMETHAZINE HYDROCHLORIDE
     Indication: Upper respiratory tract infection
     Dosage: PROMETHAZINE HCL 3.6MG/5ML, CODEINE PHOSPHATE9MG/5ML
     Route: 065
     Dates: start: 20240403, end: 20240416
  48. REMDESIVIR [Concomitant]
     Active Substance: REMDESIVIR
     Indication: Pyrexia
     Dosage: SODIUM CHLORIDE 0.9% 100 ML INFUSION
     Route: 065
     Dates: start: 20240716, end: 20240716
  49. SENNA [Concomitant]
     Active Substance: SENNA LEAF\SENNOSIDES\SENNOSIDES A AND B
     Indication: Constipation prophylaxis
     Dosage: UNK
     Route: 065
     Dates: start: 20240201
  50. SIMVASTATIN [Concomitant]
     Active Substance: SIMVASTATIN
     Indication: Hyperlipidaemia
     Dosage: UNK
     Route: 065
     Dates: start: 20220929
  51. SODIUM LACTATE [Concomitant]
     Active Substance: SODIUM LACTATE
     Indication: Supplementation therapy
     Dosage: UNK
     Route: 065
     Dates: start: 20240716, end: 20240716
  52. TRANEXAMIC ACID [Concomitant]
     Active Substance: TRANEXAMIC ACID
     Indication: Prophylaxis
     Dosage: TABLET
     Route: 065
     Dates: start: 20240627, end: 20240704
  53. VICTOZA [Concomitant]
     Active Substance: LIRAGLUTIDE
     Indication: Diabetes mellitus
     Dosage: PREFILLED PEN
     Route: 065
     Dates: start: 20230608

REACTIONS (2)
  - COVID-19 pneumonia [Recovered/Resolved]
  - Upper respiratory tract infection [Recovering/Resolving]

NARRATIVE: CASE EVENT DATE: 20240417
